FAERS Safety Report 9283262 (Version 1)
Quarter: 2013Q2

REPORT INFORMATION
  Report Type: Spontaneous
  Country: US (occurrence: US)
  Receive Date: 20130510
  Receipt Date: 20130510
  Transmission Date: 20140414
  Serious: No
  Sender: FDA-Public Use
  Company Number: US-GLAXOSMITHKLINE-A0993153A

PATIENT
  Age: 58 Year
  Sex: Female

DRUGS (4)
  1. TYKERB [Suspect]
     Indication: OESOPHAGEAL CARCINOMA
     Dosage: 250MG TWICE PER DAY
     Route: 048
     Dates: start: 20120628, end: 20120725
  2. CARVEDILOL [Concomitant]
  3. FUROSEMIDE [Concomitant]
  4. AMLODIPINE BESYLATE [Concomitant]

REACTIONS (1)
  - Stomatitis [Unknown]
